FAERS Safety Report 9527164 (Version 1)
Quarter: 2013Q3

REPORT INFORMATION
  Report Type: Spontaneous
  Country: LY (occurrence: LY)
  Receive Date: 20130916
  Receipt Date: 20130916
  Transmission Date: 20140515
  Serious: Yes (Death)
  Sender: FDA-Public Use
  Company Number: LY-BIOMARINAP-LY-2013-101494

PATIENT
  Sex: Female
  Weight: 6 kg

DRUGS (1)
  1. NAGLAZYME [Suspect]
     Indication: PRODUCT USED FOR UNKNOWN INDICATION
     Dosage: UNK, QW
     Route: 041
     Dates: start: 20130326

REACTIONS (1)
  - Respiratory tract infection [Fatal]
